FAERS Safety Report 5990214-1 (Version None)
Quarter: 2008Q4

REPORT INFORMATION
  Report Type: 
  Country: None (occurrence: None)
  Receive Date: 20081211
  Receipt Date: 20081204
  Transmission Date: 20090506
  Serious: Yes (Other)
  Sender: FDA-Public Use
  Company Number: SV-ABBOTT-08P-050-0491521-00

PATIENT
  Age: 63 Year
  Sex: Female

DRUGS (7)
  1. HUMIRA [Suspect]
     Indication: RHEUMATOID ARTHRITIS
     Route: 058
     Dates: start: 20070101
  2. METHOTREXATE [Suspect]
     Indication: RHEUMATOID ARTHRITIS
  3. METHOTREXATE [Suspect]
  4. LEFLUNOMIDE [Suspect]
     Indication: RHEUMATOID ARTHRITIS
  5. LEFLUNOMIDE [Suspect]
  6. METHOTREXATE [Concomitant]
  7. LEFLUNOMIDE [Concomitant]

REACTIONS (3)
  - COUGH [None]
  - LEUKOPENIA [None]
  - PULMONARY GRANULOMA [None]
